FAERS Safety Report 9721914 (Version 2)
Quarter: 2015Q4

REPORT INFORMATION
  Report Type: Report from Study
  Country: US (occurrence: US)
  Receive Date: 20131202
  Receipt Date: 20151001
  Transmission Date: 20160305
  Serious: Yes (Other)
  Sender: FDA-Public Use
  Company Number: US-ROCHE-1310172

PATIENT
  Sex: Male

DRUGS (3)
  1. LUCENTIS [Suspect]
     Active Substance: RANIBIZUMAB
     Indication: DIABETIC RETINAL OEDEMA
  2. LUCENTIS [Suspect]
     Active Substance: RANIBIZUMAB
     Indication: DIABETIC RETINOPATHY
  3. LUCENTIS [Suspect]
     Active Substance: RANIBIZUMAB
     Indication: DIABETES MELLITUS
     Route: 050

REACTIONS (2)
  - Localised infection [Unknown]
  - Foot amputation [Unknown]
